FAERS Safety Report 7018581-0 (Version None)
Quarter: 2010Q3

REPORT INFORMATION
  Report Type: 
  Country: None (occurrence: None)
  Receive Date: 20100928
  Receipt Date: 20100618
  Transmission Date: 20110219
  Serious: Yes (Death, Hospitalization)
  Sender: FDA-Public Use
  Company Number: JP-SANOFI-AVENTIS-2010SA027206

PATIENT
  Age: 81 Year
  Sex: Female

DRUGS (3)
  1. RILUTEK [Suspect]
     Indication: AMYOTROPHIC LATERAL SCLEROSIS
     Route: 048
     Dates: start: 20070926, end: 20080616
  2. METHYCOBAL [Concomitant]
     Route: 048
     Dates: start: 20070325, end: 20080616
  3. VASOLAN [Concomitant]
     Indication: TACHYCARDIA
     Route: 048
     Dates: start: 20070421, end: 20080616

REACTIONS (1)
  - PNEUMONIA [None]
